FAERS Safety Report 8297007-3 (Version None)
Quarter: 2012Q2

REPORT INFORMATION
  Report Type: 
  Country: None (occurrence: None)
  Receive Date: 20120419
  Receipt Date: 20120409
  Transmission Date: 20120825
  Serious: No
  Sender: FDA-Public Use
  Company Number: US-BIOGENIDEC-2012BI012187

PATIENT
  Age: 44 Year
  Sex: Female

DRUGS (6)
  1. AVONEX [Suspect]
     Indication: MULTIPLE SCLEROSIS
     Route: 030
     Dates: start: 20021213, end: 20051213
  2. AVONEX [Suspect]
     Route: 030
     Dates: start: 20110101
  3. TYLENOL (CAPLET) [Concomitant]
     Indication: PREMEDICATION
  4. BENADRYL [Concomitant]
     Indication: PREMEDICATION
  5. IBUPROFEN (ADVIL) [Concomitant]
     Indication: PREMEDICATION
  6. AVONEX [Suspect]
     Route: 030
     Dates: start: 20101210, end: 20110601

REACTIONS (3)
  - INFLUENZA LIKE ILLNESS [None]
  - UNDERDOSE [None]
  - APPLICATION SITE PAIN [None]
